FAERS Safety Report 5701573-9 (Version None)
Quarter: 2008Q2

REPORT INFORMATION
  Report Type: 
  Country: None (occurrence: None)
  Receive Date: 20080408
  Receipt Date: 20080321
  Transmission Date: 20081010
  Serious: Yes (Hospitalization)
  Sender: FDA-Public Use
  Company Number: PIR# 0803050

PATIENT
  Age: 54 Year
  Sex: Female

DRUGS (1)
  1. CEFUROXIME  (B. BRAUN MEDICAL INC.) [Suspect]
     Dosage: 1 GM PER DAY, BID

REACTIONS (13)
  - ARTHRALGIA [None]
  - BODY TEMPERATURE INCREASED [None]
  - CONJUNCTIVAL HAEMORRHAGE [None]
  - CONJUNCTIVAL OEDEMA [None]
  - EYELID OEDEMA [None]
  - LUPUS-LIKE SYNDROME [None]
  - MALAISE [None]
  - MUCOUS MEMBRANE DISORDER [None]
  - MYALGIA [None]
  - RASH ERYTHEMATOUS [None]
  - RASH GENERALISED [None]
  - RASH MACULAR [None]
  - RASH PRURITIC [None]
